FAERS Safety Report 10646168 (Version 1)
Quarter: 2014Q4

REPORT INFORMATION
  Report Type: Spontaneous
  Country: AR (occurrence: None)
  Receive Date: 20141209
  Receipt Date: 20141209
  Transmission Date: 20150529
  Serious: Yes (Other)
  Sender: FDA-Public Use
  Company Number: DEP_02365_2014

PATIENT
  Age: 51 Year
  Sex: Female

DRUGS (7)
  1. NASALFENT [Suspect]
     Active Substance: FENTANYL CITRATE
     Indication: BREAKTHROUGH PAIN
     Dosage: (ONE 400 MCG SPRAY, PRN, TREATING UP TO 4 BREAKTHROUGH PAIN EPISODES/DAY RESPIRATORY (INHALATION))
     Route: 055
     Dates: start: 20080731, end: 20090215
  2. GABAPENTINE [Concomitant]
     Active Substance: GABAPENTIN
  3. DICLOFENAC [Concomitant]
     Active Substance: DICLOFENAC
  4. CLONAZEPAM. [Suspect]
     Active Substance: CLONAZEPAM
     Indication: ANXIETY DISORDER
     Dosage: (925 MG, PRN ORAL)
     Route: 048
     Dates: start: 20080715
  5. OXYCODONE [Suspect]
     Active Substance: OXYCODONE
     Indication: CANCER PAIN
     Dosage: (30 MG, PRN ORAL)
     Route: 048
     Dates: start: 20080727
  6. LACTULOSE. [Concomitant]
     Active Substance: LACTULOSE
  7. OMEPRAZOLE. [Concomitant]
     Active Substance: OMEPRAZOLE

REACTIONS (13)
  - Neurotoxicity [None]
  - White blood cell count increased [None]
  - Concomitant disease progression [None]
  - Blood creatinine increased [None]
  - Blood urea increased [None]
  - Accidental overdose [None]
  - Neuralgia [None]
  - Hallucination, tactile [None]
  - Haematocrit decreased [None]
  - Alanine aminotransferase increased [None]
  - Hallucination, visual [None]
  - Anxiety [None]
  - Blood glucose increased [None]

NARRATIVE: CASE EVENT DATE: 20090215
